FAERS Safety Report 15475157 (Version 1)
Quarter: 2018Q4

REPORT INFORMATION
  Report Type: Spontaneous
  Country: KR (occurrence: KR)
  Receive Date: 20181008
  Receipt Date: 20181008
  Transmission Date: 20190205
  Serious: Yes (Hospitalization)
  Sender: FDA-Public Use
  Company Number: KR-PFIZER INC-2018397743

PATIENT
  Age: 59 Year
  Sex: Male

DRUGS (9)
  1. MORPHINE SULFATE. [Suspect]
     Active Substance: MORPHINE SULFATE
     Indication: ABDOMINAL PAIN
     Dosage: 1100 MG, DAILY
  2. BUPRENORPHINE. [Suspect]
     Active Substance: BUPRENORPHINE
     Indication: DEPENDENCE
     Dosage: 20UG/HOUR
     Route: 062
  3. OXYCODONE [Suspect]
     Active Substance: OXYCODONE
     Indication: ABDOMINAL PAIN
     Dosage: 100 MG, DAILY (INTRAVENOUS INFUSION)
     Route: 042
  4. MORPHINE SULFATE. [Suspect]
     Active Substance: MORPHINE SULFATE
     Dosage: APPROXIMATELY 1200 TO 1600 MG/DAY
  5. FENTANYL. [Suspect]
     Active Substance: FENTANYL
     Indication: CANCER PAIN
     Dosage: 75 UG/HOUR
     Route: 062
  6. OXYCODONE [Suspect]
     Active Substance: OXYCODONE
     Dosage: 200 MG, DAILY
     Route: 042
  7. MORPHINE SULFATE. [Suspect]
     Active Substance: MORPHINE SULFATE
     Indication: BREAKTHROUGH PAIN
     Dosage: 800 MG, DAILY (EQUIVALENT DAILY DOSE, 150 MG/DAY FOR THE BACKGROUND DOSE AND 650MG/DAY FOR THE CUMU)
  8. FENTORA [Suspect]
     Active Substance: FENTANYL CITRATE
     Indication: BREAKTHROUGH PAIN
     Dosage: 400 UG, UNK (BUCCAL TABLET)
     Route: 048
  9. MORPHINE SULFATE. [Suspect]
     Active Substance: MORPHINE SULFATE
     Dosage: 1400 MG, DAILY

REACTIONS (3)
  - Drug dependence [Recovering/Resolving]
  - Hyperaesthesia [Recovering/Resolving]
  - Drug ineffective [Unknown]
